FAERS Safety Report 23252897 (Version 1)
Quarter: 2023Q4

REPORT INFORMATION
  Report Type: Spontaneous
  Country: US (occurrence: US)
  Receive Date: 20231201
  Receipt Date: 20231201
  Transmission Date: 20240109
  Serious: No
  Sender: FDA-Public Use
  Company Number: US-ORG100016242-2022002889

PATIENT
  Sex: Female

DRUGS (3)
  1. ZILRETTA [Suspect]
     Active Substance: TRIAMCINOLONE ACETONIDE
     Indication: Arthralgia
     Dosage: DOSAGE UNKNOWN, EXPIRY DATE NOT PROVIDED
     Dates: start: 20220101, end: 20220101
  2. ZILRETTA [Suspect]
     Active Substance: TRIAMCINOLONE ACETONIDE
     Indication: Arthralgia
     Dosage: DOSAGE UNKNOWN, EXPIRY DATE NOT PROVIDED
     Dates: start: 20220501, end: 20220501
  3. ZILRETTA [Suspect]
     Active Substance: TRIAMCINOLONE ACETONIDE
     Indication: Arthralgia
     Dosage: DOSAGE UNKNOWN, EXPIRY DATE NOT PROVIDED
     Dates: start: 202208, end: 202208

REACTIONS (1)
  - Pain [Unknown]
